FAERS Safety Report 9060083 (Version 1)
Quarter: 2013Q1

REPORT INFORMATION
  Report Type: Spontaneous
  Country: FR (occurrence: FR)
  Receive Date: 20130212
  Receipt Date: 20130212
  Transmission Date: 20140127
  Serious: Yes (Hospitalization)
  Sender: FDA-Public Use
  Company Number: FR-SANOFI-AVENTIS-2012SA093095

PATIENT
  Age: 72 Year
  Sex: Male

DRUGS (3)
  1. KARDEGIC [Suspect]
     Indication: ACUTE CORONARY SYNDROME
     Route: 048
     Dates: start: 201210
  2. PLAVIX [Suspect]
     Indication: ACUTE CORONARY SYNDROME
     Route: 048
     Dates: start: 201210
  3. DABIGATRAN [Suspect]
     Indication: ACUTE CORONARY SYNDROME
     Route: 048
     Dates: start: 201210

REACTIONS (4)
  - Hypertensive crisis [Unknown]
  - Epistaxis [Recovered/Resolved]
  - Hot flush [Unknown]
  - Tinnitus [Unknown]
